FAERS Safety Report 10012129 (Version 12)
Quarter: 2015Q4

REPORT INFORMATION
  Report Type: Report from Study
  Country: US (occurrence: US)
  Receive Date: 20140314
  Receipt Date: 20151023
  Transmission Date: 20160304
  Serious: Yes (Other)
  Sender: FDA-Public Use
  Company Number: US-SANOFI-AVENTIS-2013SA063894

PATIENT
  Age: 46 Year
  Sex: Female

DRUGS (6)
  1. AUBAGIO [Suspect]
     Active Substance: TERIFLUNOMIDE
     Indication: MULTIPLE SCLEROSIS
     Route: 048
     Dates: start: 20130721, end: 20140425
  2. AUBAGIO [Suspect]
     Active Substance: TERIFLUNOMIDE
     Indication: MULTIPLE SCLEROSIS
     Route: 048
  3. KEPPRA [Concomitant]
     Active Substance: LEVETIRACETAM
  4. COPAXONE [Concomitant]
     Active Substance: GLATIRAMER ACETATE
     Dates: start: 20130601, end: 20140425
  5. AUBAGIO [Suspect]
     Active Substance: TERIFLUNOMIDE
     Indication: MULTIPLE SCLEROSIS
     Route: 048
     Dates: start: 20130601
  6. AUBAGIO [Suspect]
     Active Substance: TERIFLUNOMIDE
     Indication: MULTIPLE SCLEROSIS
     Route: 048
     Dates: start: 20150320

REACTIONS (21)
  - Pollakiuria [Recovering/Resolving]
  - Trichorrhexis [Unknown]
  - Paraesthesia [Unknown]
  - Pain [Unknown]
  - Multiple sclerosis relapse [Recovered/Resolved]
  - Insomnia [Unknown]
  - Pruritus [Unknown]
  - Alopecia [Not Recovered/Not Resolved]
  - Diarrhoea [Not Recovered/Not Resolved]
  - Headache [Unknown]
  - Cystitis [Not Recovered/Not Resolved]
  - Balance disorder [Not Recovered/Not Resolved]
  - Gastrointestinal disorder [Unknown]
  - Pyrexia [Unknown]
  - Cataract [Unknown]
  - Dry skin [Recovering/Resolving]
  - Feeling of body temperature change [Unknown]
  - Fatigue [Unknown]
  - Burning sensation [Unknown]
  - Nausea [Unknown]
  - Mobility decreased [Unknown]

NARRATIVE: CASE EVENT DATE: 201303
